FAERS Safety Report 25284655 (Version 1)
Quarter: 2025Q2

REPORT INFORMATION
  Report Type: Spontaneous
  Country: FR (occurrence: FR)
  Receive Date: 20250508
  Receipt Date: 20250508
  Transmission Date: 20250716
  Serious: Yes (Hospitalization)
  Sender: TEVA
  Company Number: None

PATIENT
  Age: 52 Year
  Sex: Male
  Weight: 84 kg

DRUGS (5)
  1. RAMIPRIL [Suspect]
     Active Substance: RAMIPRIL
     Indication: Infarction
     Route: 048
     Dates: start: 20250115, end: 20250125
  2. LANSOPRAZOLE [Suspect]
     Active Substance: LANSOPRAZOLE
     Indication: Infarction
     Route: 048
     Dates: start: 20250115, end: 20250125
  3. OMNIPAQUE [Suspect]
     Active Substance: IOHEXOL
     Indication: Scan with contrast
     Route: 042
     Dates: start: 20250114, end: 20250117
  4. ATORVASTATIN [Suspect]
     Active Substance: ATORVASTATIN
     Indication: Infarction
     Dosage: ATORVASTATINE
     Route: 048
     Dates: start: 20250115, end: 20250125
  5. BISOPROLOL [Suspect]
     Active Substance: BISOPROLOL
     Indication: Infarction
     Dosage: BISOPROLOL (HEMIFUMARATE)
     Route: 048
     Dates: start: 20250115, end: 20250125

REACTIONS (1)
  - Rash maculo-papular [Recovered/Resolved]

NARRATIVE: CASE EVENT DATE: 20250124
